FAERS Safety Report 4962203-7 (Version None)
Quarter: 2006Q2

REPORT INFORMATION
  Report Type: 
  Country: None (occurrence: None)
  Receive Date: 20060404
  Receipt Date: 20060202
  Transmission Date: 20061013
  Serious: Yes (Other)
  Sender: FDA-Public Use
  Company Number: US-MERCK-0602USA01736

PATIENT
  Age: 73 Year
  Sex: Female
  Weight: 80 kg

DRUGS (2)
  1. VIOXX [Suspect]
     Indication: ARTHRITIS
     Route: 048
     Dates: start: 19980101, end: 20040101
  2. TYLENOL (CAPLET) [Concomitant]
     Route: 065

REACTIONS (3)
  - DEPRESSION [None]
  - MOTION SICKNESS [None]
  - OCULAR VASCULAR DISORDER [None]
